FAERS Safety Report 11455270 (Version 1)
Quarter: 2015Q3

REPORT INFORMATION
  Report Type: Spontaneous
  Country: IT (occurrence: FR)
  Receive Date: 20150903
  Receipt Date: 20150903
  Transmission Date: 20151125
  Serious: Yes (Life-Threatening, Hospitalization)
  Sender: FDA-Public Use
  Company Number: FR-FRI-1000079278

PATIENT
  Age: 74 Year
  Sex: Female

DRUGS (14)
  1. MONUROL [Suspect]
     Active Substance: FOSFOMYCIN TROMETHAMINE
     Indication: URINARY TRACT INFECTION
     Dosage: 1 DF
     Route: 048
     Dates: start: 20150724, end: 20150724
  2. OXYCODONE [Concomitant]
     Active Substance: OXYCODONE
  3. AMLODIPINE [Concomitant]
     Active Substance: AMLODIPINE BESYLATE
  4. PARACETAMOL [Concomitant]
     Active Substance: ACETAMINOPHEN
  5. OXYNORMORO [Concomitant]
     Active Substance: OXYCODONE
  6. ATORVASTATINE [Concomitant]
     Active Substance: ATORVASTATIN
  7. HYZAAR [Concomitant]
     Active Substance: HYDROCHLOROTHIAZIDE\LOSARTAN POTASSIUM
  8. FRAGMINE [Concomitant]
     Active Substance: DALTEPARIN SODIUM
  9. DIFFU K [Concomitant]
     Active Substance: POTASSIUM CHLORIDE
  10. ZOPLICONE [Concomitant]
     Active Substance: ZOPICLONE
  11. PANTOPRAZOLE [Concomitant]
     Active Substance: PANTOPRAZOLE SODIUM
  12. TARGOCID [Suspect]
     Active Substance: TEICOPLANIN
     Indication: STAPHYLOCOCCAL INFECTION
     Dosage: 600 MICROGRAM
     Route: 042
     Dates: start: 20150702, end: 20150803
  13. AZOPT [Concomitant]
     Active Substance: BRINZOLAMIDE
  14. GANFORT [Concomitant]
     Active Substance: BIMATOPROST\TIMOLOL

REACTIONS (1)
  - Toxic epidermal necrolysis [Recovered/Resolved]

NARRATIVE: CASE EVENT DATE: 20150726
